FAERS Safety Report 10504700 (Version 1)
Quarter: 2014Q4

REPORT INFORMATION
  Report Type: Spontaneous
  Country: US (occurrence: None)
  Receive Date: 20141002
  Receipt Date: 20141002
  Transmission Date: 20150528
  Serious: Yes (Hospitalization, Disabling, Other)
  Sender: FDA-Public Use
  Company Number: PHEH2014US012302

PATIENT
  Age: 72 Year
  Sex: Female

DRUGS (2)
  1. EXEMESTANE (EXEMESTANE) [Concomitant]
  2. AFINITOR [Suspect]
     Active Substance: EVEROLIMUS
     Route: 048
     Dates: start: 20131116

REACTIONS (2)
  - Cellulitis [None]
  - Oedema peripheral [None]

NARRATIVE: CASE EVENT DATE: 20131116
